FAERS Safety Report 7548644-2 (Version None)
Quarter: 2011Q2

REPORT INFORMATION
  Report Type: 
  Country: None (occurrence: None)
  Receive Date: 20110615
  Receipt Date: 20110609
  Transmission Date: 20111010
  Serious: Yes (Hospitalization)
  Sender: FDA-Public Use
  Company Number: US-SANOFI-AVENTIS-2011SA036833

PATIENT
  Age: 73 Year
  Sex: Male

DRUGS (5)
  1. MULTAQ [Suspect]
     Route: 048
     Dates: start: 20110610
  2. CARDIAZEM [Concomitant]
     Dates: start: 20110601
  3. CARDIAZEM [Concomitant]
     Dosage: GIVEN ONCE
     Route: 051
     Dates: start: 20110603
  4. MULTAQ [Suspect]
     Indication: ATRIAL FLUTTER
     Route: 048
     Dates: start: 20110606, end: 20110610
  5. DABIGATRAN ETEXILATE [Concomitant]
     Route: 065
     Dates: start: 20110601

REACTIONS (5)
  - DEHYDRATION [None]
  - ATRIAL FLUTTER [None]
  - BLOOD CREATININE INCREASED [None]
  - SUPRAVENTRICULAR EXTRASYSTOLES [None]
  - UNDERDOSE [None]
